FAERS Safety Report 8120949-6 (Version None)
Quarter: 2012Q1

REPORT INFORMATION
  Report Type: 
  Country: None (occurrence: None)
  Receive Date: 20120208
  Receipt Date: 20120119
  Transmission Date: 20120608
  Serious: Yes (Hospitalization, Other)
  Sender: FDA-Public Use
  Company Number: US-BAYER-2011-084681

PATIENT
  Age: 45 Year
  Sex: Female
  Weight: 74 kg

DRUGS (5)
  1. YAZ [Suspect]
     Indication: ORAL CONTRACEPTION
     Dosage: UNK
     Dates: start: 20070101, end: 20090101
  2. NEXIUM [Concomitant]
     Route: 048
  3. LEVSIN [Concomitant]
     Route: 048
  4. YASMIN [Suspect]
     Indication: ORAL CONTRACEPTION
     Dosage: UNK
     Dates: start: 20070101, end: 20090901
  5. ALBUTEROL [Concomitant]
     Route: 048

REACTIONS (6)
  - INJURY [None]
  - ANHEDONIA [None]
  - CHOLECYSTITIS CHRONIC [None]
  - CHOLELITHIASIS [None]
  - PAIN [None]
  - BILE DUCT OBSTRUCTION [None]
